FAERS Safety Report 5440522-8 (Version None)
Quarter: 2007Q3

REPORT INFORMATION
  Report Type: 
  Country: None (occurrence: None)
  Receive Date: 20070731
  Receipt Date: 20070607
  Transmission Date: 20080115
  Serious: No
  Sender: FDA-Public Use
  Company Number: US200706001829

PATIENT
  Age: 57 Year
  Sex: Female
  Weight: 97.5 kg

DRUGS (6)
  1. BYETTA [Suspect]
     Indication: TYPE 2 DIABETES MELLITUS
     Dosage: 5 UG, 2/D, SUBCUTANEOUS, 10 UG, 2/D, SUBCUTANEOUS
     Route: 058
     Dates: start: 20061201, end: 20070101
  2. BYETTA [Suspect]
     Indication: TYPE 2 DIABETES MELLITUS
     Dosage: 5 UG, 2/D, SUBCUTANEOUS, 10 UG, 2/D, SUBCUTANEOUS
     Route: 058
     Dates: start: 20070101
  3. EXENATIDE (EXENATIDE) [Concomitant]
  4. METFORMIN HCL [Concomitant]
  5. GLIPIZIDE XL (GLIPIZIDE) [Concomitant]
  6. LIPOIC ACID (THIOCTIC ACID) [Concomitant]

REACTIONS (6)
  - DISTURBANCE IN ATTENTION [None]
  - DYSKINESIA [None]
  - FEELING JITTERY [None]
  - INCORRECT DOSE ADMINISTERED [None]
  - NERVOUSNESS [None]
  - WEIGHT DECREASED [None]
